FAERS Safety Report 9032199 (Version 3)
Quarter: 2013Q1

REPORT INFORMATION
  Report Type: Spontaneous
  Country: JP (occurrence: JP)
  Receive Date: 20130122
  Receipt Date: 20130304
  Transmission Date: 20140127
  Serious: Yes (Hospitalization)
  Sender: FDA-Public Use
  Company Number: JP-UCBSA-074955

PATIENT
  Age: 60 Year
  Sex: Male
  Weight: 48.6 kg

DRUGS (6)
  1. E KEPPRA [Suspect]
     Indication: EPILEPSY
     Route: 048
     Dates: start: 20121219, end: 20121225
  2. TEGRETOL [Suspect]
     Dosage: DAILY DOSE: 100 MG
     Route: 048
     Dates: start: 20121219, end: 20121223
  3. GABAPENTIN [Concomitant]
     Dosage: UNKNOWN DOSE
  4. ALEVIATIN [Concomitant]
     Dosage: DAILY DOSE: 250 MG
     Route: 041
     Dates: start: 20121218, end: 20121220
  5. CERCINE [Concomitant]
     Dosage: DAILY DOSE:10 MG
     Route: 042
     Dates: start: 20121218, end: 20121218
  6. PHENOBAL [Concomitant]
     Dosage: DAILY DOSE:100 MG
     Route: 030
     Dates: start: 20121218, end: 20121218

REACTIONS (4)
  - White blood cell count decreased [Not Recovered/Not Resolved]
  - Platelet count decreased [Not Recovered/Not Resolved]
  - Blood pressure decreased [Recovered/Resolved]
  - Heart rate decreased [Recovered/Resolved]
